FAERS Safety Report 5011921-3 (Version None)
Quarter: 2006Q2

REPORT INFORMATION
  Report Type: 
  Country: None (occurrence: None)
  Receive Date: 20060524
  Receipt Date: 20060314
  Transmission Date: 20061013
  Serious: Yes (Death)
  Sender: FDA-Public Use
  Company Number: T200600337

PATIENT
  Age: 43 Year

DRUGS (2)
  1. METHADOSE ORAL CONCENTRATE(METHADONE HYDROCHLORIDE) SYRUP, 10MG/ML [Suspect]
     Dosage: ORAL
     Route: 048
  2. TRICYCLIC ANTIDEPRESSANTS () [Suspect]

REACTIONS (2)
  - CARDIAC ARREST [None]
  - RESPIRATORY ARREST [None]
